FAERS Safety Report 4677986-3 (Version None)
Quarter: 2005Q2

REPORT INFORMATION
  Report Type: 
  Country: None (occurrence: None)
  Receive Date: 20050531
  Receipt Date: 20050523
  Transmission Date: 20051028
  Serious: Yes (Hospitalization)
  Sender: FDA-Public Use
  Company Number: 2005SE03027

PATIENT
  Age: 27817 Day
  Sex: Male

DRUGS (7)
  1. BLOPRESS TABLETS 8 [Suspect]
     Indication: HYPERTENSION
     Route: 048
     Dates: start: 20040612, end: 20050408
  2. TOPHARMIN [Suspect]
     Indication: DEPRESSION
     Route: 048
     Dates: end: 20050404
  3. U-PAN [Concomitant]
     Indication: DEPRESSION
     Route: 048
     Dates: end: 20050404
  4. DIGOSIN [Concomitant]
     Route: 048
     Dates: start: 20030707
  5. GLIMICRON [Concomitant]
     Route: 048
     Dates: start: 20030707
  6. LASIX [Concomitant]
     Route: 048
     Dates: start: 20030707
  7. WARFARIN SODIUM [Concomitant]
     Route: 048
     Dates: start: 20030707

REACTIONS (2)
  - NEUROLEPTIC MALIGNANT SYNDROME [None]
  - RHABDOMYOLYSIS [None]
